FAERS Safety Report 26054025 (Version 2)
Quarter: 2025Q4

REPORT INFORMATION
  Report Type: Spontaneous
  Country: IL (occurrence: IL)
  Receive Date: 20251117
  Receipt Date: 20251214
  Transmission Date: 20260118
  Serious: No
  Sender: RECORDATI
  Company Number: IL-Medison-001734

PATIENT
  Age: 19 Year
  Sex: Male

DRUGS (2)
  1. CYSTADANE [Suspect]
     Active Substance: BETAINE
     Indication: Methylenetetrahydrofolate reductase deficiency
     Dosage: UNK
     Dates: start: 2025, end: 2025
  2. CYSTADANE [Suspect]
     Active Substance: BETAINE
     Dosage: DOSE INCREASED
     Dates: start: 2025

REACTIONS (1)
  - Product delivery mechanism issue [Recovered/Resolved]

NARRATIVE: CASE EVENT DATE: 20250101
